FAERS Safety Report 10518953 (Version 1)
Quarter: 2014Q4

REPORT INFORMATION
  Report Type: Spontaneous
  Country: US (occurrence: None)
  Receive Date: 20141014
  Receipt Date: 20141014
  Transmission Date: 20150528
  Serious: No
  Sender: FDA-Public Use
  Company Number: None

PATIENT
  Age: 63 Year
  Sex: Female
  Weight: 68.04 kg

DRUGS (1)
  1. LEVETIRACETAM. [Suspect]
     Active Substance: LEVETIRACETAM
     Dosage: 1 TABLET QD ORAL
     Route: 048
     Dates: start: 20141001, end: 20141009

REACTIONS (1)
  - Intercepted drug dispensing error [None]

NARRATIVE: CASE EVENT DATE: 20141001
